FAERS Safety Report 5367464-0 (Version None)
Quarter: 2007Q2

REPORT INFORMATION
  Report Type: 
  Country: None (occurrence: None)
  Receive Date: 20070622
  Receipt Date: 20060801
  Transmission Date: 20071010
  Serious: Yes (Other)
  Sender: FDA-Public Use
  Company Number: US-ASTRAZENECA-2006UW14153

PATIENT
  Age: 18 Year
  Sex: Male
  Weight: 50.9 kg

DRUGS (3)
  1. PULMICORT RESPULES [Suspect]
     Indication: ASTHMA
     Route: 055
  2. ALBUTEROL [Concomitant]
     Indication: ASTHMA
     Dates: start: 20060626, end: 20060703
  3. MUCINEX [Concomitant]
     Indication: PULMONARY CONGESTION
     Dosage: 1
     Route: 048
     Dates: start: 20060626, end: 20060703

REACTIONS (2)
  - RESPIRATORY DISTRESS [None]
  - SWELLING FACE [None]
